FAERS Safety Report 7921525-8 (Version None)
Quarter: 2011Q4

REPORT INFORMATION
  Report Type: 
  Country: None (occurrence: None)
  Receive Date: 20111117
  Receipt Date: 20111115
  Transmission Date: 20120403
  Serious: Yes (Death)
  Sender: FDA-Public Use
  Company Number: US-VERTEX PHARMACEUTICALS INC.-AE-2011-003455

PATIENT
  Age: 55 Year
  Sex: Male

DRUGS (3)
  1. DIGOXIN [Concomitant]
  2. COUMADIN [Concomitant]
  3. INCIVEK [Suspect]
     Indication: HEPATITIS C
     Dates: start: 20111111, end: 20111115

REACTIONS (2)
  - DYSPNOEA [None]
  - CARDIAC ARREST [None]
